FAERS Safety Report 16791228 (Version 1)
Quarter: 2019Q3

REPORT INFORMATION
  Report Type: Spontaneous
  Country: US (occurrence: US)
  Receive Date: 20190909
  Receipt Date: 20190909
  Transmission Date: 20191005
  Serious: Yes (Hospitalization)
  Sender: FDA-Public Use
  Company Number: None

PATIENT
  Age: 18 Year
  Sex: Male
  Weight: 95 kg

DRUGS (1)
  1. VAPE PEN (MARIJUANA) [Suspect]
     Active Substance: CANNABIS SATIVA SUBSP. INDICA TOP\DEVICE

REACTIONS (3)
  - Eosinophilic pneumonia chronic [None]
  - Traumatic lung injury [None]
  - Pyrexia [None]

NARRATIVE: CASE EVENT DATE: 20190902
